FAERS Safety Report 19859604 (Version 1)
Quarter: 2021Q3

REPORT INFORMATION
  Report Type: Spontaneous
  Country: US (occurrence: US)
  Receive Date: 20210920
  Receipt Date: 20210920
  Transmission Date: 20211014
  Serious: Yes (Other)
  Sender: FDA-Public Use
  Company Number: None

PATIENT
  Age: 73 Year
  Sex: Male
  Weight: 69.75 kg

DRUGS (4)
  1. THYROID 30 MG., [Concomitant]
  2. LISINOPRIL 10/HCTZ [Concomitant]
  3. PRALUENT [Suspect]
     Active Substance: ALIROCUMAB
     Indication: COMPUTERISED TOMOGRAM CORONARY ARTERY ABNORMAL
     Dosage: ?          QUANTITY:2 INJECTION(S);OTHER ROUTE:SUB Q?
     Dates: start: 20210903, end: 20210903
  4. TESTOSTERONE INJ. WEEKLY 80 MG. [Concomitant]

REACTIONS (4)
  - Loss of consciousness [None]
  - Tremor [None]
  - Blood pressure decreased [None]
  - Disorientation [None]

NARRATIVE: CASE EVENT DATE: 20210903
